FAERS Safety Report 4433169-3 (Version None)
Quarter: 2004Q3

REPORT INFORMATION
  Report Type: 
  Country: None (occurrence: None)
  Receive Date: 20040823
  Receipt Date: 20040809
  Transmission Date: 20050211
  Serious: Yes (Other)
  Sender: FDA-Public Use
  Company Number: 2004041300

PATIENT
  Age: 74 Year
  Sex: Male

DRUGS (9)
  1. ZITHROMAX [Suspect]
     Indication: BRONCHITIS
     Dosage: ORAL
     Route: 048
     Dates: start: 20040423, end: 20040427
  2. DOXYCYCLINE [Suspect]
     Indication: BRONCHITIS
     Dosage: 100 MG (50 MG, 2 IN 1 D), ORAL
     Route: 048
     Dates: start: 20040429, end: 20040508
  3. ZOCOR [Suspect]
     Indication: HYPERLIPIDAEMIA
     Dosage: 20 MG (20 MG, 1 IN 1 D), ORAL
     Route: 048
     Dates: start: 20020208, end: 20040522
  4. GLYBURIDE [Concomitant]
  5. QUINAPRIL HCL [Concomitant]
  6. METOPROLOL TARTRATE [Concomitant]
  7. FINASTERIDE [Concomitant]
  8. WARFARIN (WARFARIN) [Concomitant]
  9. TERAZOSIN HYDROCHLORIDE [Concomitant]

REACTIONS (6)
  - CHOLESTASIS [None]
  - CONDITION AGGRAVATED [None]
  - COUGH [None]
  - HEPATOCELLULAR DAMAGE [None]
  - LUNG INFILTRATION [None]
  - RESPIRATORY TRACT CONGESTION [None]
